FAERS Safety Report 8373915-X (Version None)
Quarter: 2012Q2

REPORT INFORMATION
  Report Type: 
  Country: None (occurrence: None)
  Receive Date: 20120521
  Receipt Date: 20120403
  Transmission Date: 20120825
  Serious: No
  Sender: FDA-Public Use
  Company Number: US-ASTRAZENECA-2012SE21361

PATIENT
  Age: 43 Year
  Sex: Female

DRUGS (2)
  1. NEXIUM [Suspect]
     Route: 048
  2. PRILOSEC [Suspect]
     Route: 048

REACTIONS (7)
  - BURNING SENSATION [None]
  - URINARY TRACT DISORDER [None]
  - INTENTIONAL DRUG MISUSE [None]
  - DYSPHAGIA [None]
  - DYSPEPSIA [None]
  - ABDOMINAL PAIN UPPER [None]
  - PAIN [None]
